FAERS Safety Report 5528324-5 (Version None)
Quarter: 2007Q4

REPORT INFORMATION
  Report Type: 
  Country: None (occurrence: None)
  Receive Date: 20071128
  Receipt Date: 20071121
  Transmission Date: 20080405
  Serious: Yes (Other)
  Sender: FDA-Public Use
  Company Number: GB-PFIZER INC-2007098732

PATIENT
  Age: 54 Year
  Sex: Female
  Weight: 91.5 kg

DRUGS (4)
  1. CHAMPIX [Suspect]
     Indication: SMOKING CESSATION THERAPY
     Route: 048
     Dates: start: 20070702, end: 20070711
  2. ADALAT [Concomitant]
  3. ACETYLSALICYLIC ACID SRT [Concomitant]
  4. LAMOTRIGINE [Concomitant]

REACTIONS (1)
  - CONFUSIONAL STATE [None]
